FAERS Safety Report 21385553 (Version 3)
Quarter: 2022Q4

REPORT INFORMATION
  Report Type: Other
  Country: ES (occurrence: None)
  Receive Date: 20220928
  Receipt Date: 20221125
  Transmission Date: 20230112
  Serious: No
  Sender: FDA-Public Use
  Company Number: ES-ROCHE-3187734

PATIENT
  Age: 41 Year
  Sex: Male
  Weight: 89 kg

DRUGS (3)
  1. OCRELIZUMAB [Suspect]
     Active Substance: OCRELIZUMAB
     Indication: Primary progressive multiple sclerosis
     Dosage: ON 03/DEC/2019, HE RECEIVED SUBSEQUENT DOSE OF OCRELIZUMAB (LOT NUMBER: NOT REPORTED) (300 MG IN 250
     Route: 042
     Dates: start: 20191119, end: 20191119
  2. OCRELIZUMAB [Suspect]
     Active Substance: OCRELIZUMAB
     Dosage: HE RECEIVED SUBSEQUENT DOSE OF OCRELIZUMAB (LOT NUMBER: NOT REPORTED) (600 MG IN 500 ML) ON 15/DEC/2
     Route: 042
     Dates: start: 20200606, end: 20200606
  3. OMEPRAZOLE [Concomitant]
     Active Substance: OMEPRAZOLE
     Route: 048
     Dates: start: 20191203

REACTIONS (1)
  - COVID-19 [Recovered/Resolved]

NARRATIVE: CASE EVENT DATE: 20220312
